FAERS Safety Report 7557344-4 (Version None)
Quarter: 2011Q2

REPORT INFORMATION
  Report Type: 
  Country: None (occurrence: None)
  Receive Date: 20110620
  Receipt Date: 20110607
  Transmission Date: 20111010
  Serious: Yes (Hospitalization)
  Sender: FDA-Public Use
  Company Number: US-ROCHE-782389

PATIENT
  Sex: Female

DRUGS (3)
  1. BEVACIZUMAB [Suspect]
     Indication: ENDOMETRIAL CANCER
     Dosage: FREQUENCY: OVER 30 TO 90 MINUTES ON DAY 1 X 6CYCLES; LAST DOSE PRIOR TO SAE: 06 DEC 2010
     Route: 042
  2. IXABEPILONE [Suspect]
     Indication: ENDOMETRIAL CANCER
     Dosage: OVER 1 HR ON DAY1 X 6 CYCLES; LAST DOSE PRIOR TO SAE: 06 DEC 2010
     Route: 042
     Dates: start: 20100712
  3. CARBOPLATIN [Suspect]
     Indication: ENDOMETRIAL CANCER
     Dosage: AUC= 6 IV OVER 30 MIN ON DAY 1 X 6 CYCLES; THERAPY; LAST DOSE PRIOR TO SAE: 06 DEC 2010
     Route: 042
     Dates: start: 20100712

REACTIONS (1)
  - CONVULSION [None]
